FAERS Safety Report 20472748 (Version 1)
Quarter: 2022Q1

REPORT INFORMATION
  Report Type: Report from Study
  Country: ES (occurrence: ES)
  Receive Date: 20220215
  Receipt Date: 20220215
  Transmission Date: 20220423
  Serious: Yes (Hospitalization)
  Sender: FDA-Public Use
  Company Number: ES-SA-SAC20220209000954

PATIENT
  Sex: Female

DRUGS (2)
  1. INSULIN GLARGINE [Suspect]
     Active Substance: INSULIN GLARGINE
     Indication: Type 2 diabetes mellitus
     Dosage: 74 IU, QW
     Route: 058
  2. METFORMIN [Concomitant]
     Active Substance: METFORMIN HYDROCHLORIDE
     Indication: Type 2 diabetes mellitus
     Dosage: DOSAGE/UNIT/FREQ/AMOUNT : 1-1-0
     Route: 048

REACTIONS (9)
  - Irritable bowel syndrome [Recovered/Resolved]
  - COVID-19 [Unknown]
  - Weight decreased [Unknown]
  - Decreased appetite [Unknown]
  - Visual impairment [Unknown]
  - Condition aggravated [Unknown]
  - Hypertension [Unknown]
  - Fatigue [Not Recovered/Not Resolved]
  - Vitamin D decreased [Not Recovered/Not Resolved]

NARRATIVE: CASE EVENT DATE: 20210101
